FAERS Safety Report 4616737-5 (Version None)
Quarter: 2005Q2

REPORT INFORMATION
  Report Type: 
  Country: None (occurrence: None)
  Receive Date: 20050311
  Receipt Date: 20041116
  Transmission Date: 20051028
  Serious: Yes (Hospitalization)
  Sender: FDA-Public Use
  Company Number: 2004-00819

PATIENT
  Age: 67 Year
  Sex: Male
  Weight: 87.1 kg

DRUGS (9)
  1. VELCADE [Suspect]
     Indication: MULTIPLE MYELOMA
     Dosage: 2.60 MG, INTRAVENOUS
     Route: 042
     Dates: start: 20040817
  2. POTASSIUM ACETATE [Concomitant]
  3. ZITHROMAX [Concomitant]
  4. LIPITOR [Concomitant]
  5. ZAROXOLYN [Concomitant]
  6. DOXYCYCLINE [Concomitant]
  7. COUMADIN [Concomitant]
  8. CLARITIN [Concomitant]
  9. ZOMETA [Concomitant]

REACTIONS (6)
  - DIZZINESS [None]
  - DYSPNOEA [None]
  - FALL [None]
  - FEELING ABNORMAL [None]
  - ORTHOSTATIC HYPOTENSION [None]
  - PALLOR [None]
